FAERS Safety Report 7548764-2 (Version None)
Quarter: 2011Q2

REPORT INFORMATION
  Report Type: 
  Country: None (occurrence: None)
  Receive Date: 20110615
  Receipt Date: 20110607
  Transmission Date: 20111010
  Serious: Yes (Hospitalization)
  Sender: FDA-Public Use
  Company Number: IT-B.I. PHARMACEUTICALS,INC./RIDGEFIELD-2011-IT-00150IT

PATIENT
  Sex: Female

DRUGS (4)
  1. PREDNISONE [Concomitant]
     Route: 048
  2. SPIRIVA RESPIMAT [Suspect]
     Indication: BRONCHOPNEUMOPATHY
     Dosage: 5 MCG
     Route: 055
     Dates: start: 20110517, end: 20110522
  3. FLUTICASONE PROPIONATE [Concomitant]
     Route: 055
  4. LACIDIPINE [Concomitant]
     Route: 048

REACTIONS (2)
  - DYSPNOEA [None]
  - TACHYCARDIA [None]
